FAERS Safety Report 7474589-2 (Version None)
Quarter: 2011Q2

REPORT INFORMATION
  Report Type: 
  Country: None (occurrence: None)
  Receive Date: 20110503
  Receipt Date: 20110419
  Transmission Date: 20111010
  Serious: Yes (Death, Other)
  Sender: FDA-Public Use
  Company Number: MPS1-1000425

PATIENT
  Age: 5 Year
  Sex: Male
  Weight: 16 kg

DRUGS (1)
  1. ALDURAZYME [Suspect]
     Indication: MUCOPOLYSACCHARIDOSIS I
     Dosage: 1500 U, QW, INTRAVENOUS
     Route: 042
     Dates: start: 20080308, end: 20101206

REACTIONS (10)
  - BRONCHOSPASM [None]
  - THYMUS DISORDER [None]
  - BRONCHITIS CHRONIC [None]
  - HYPERAEMIA [None]
  - PULMONARY OEDEMA [None]
  - UPPER AIRWAY OBSTRUCTION [None]
  - ASPIRATION [None]
  - EMPHYSEMA [None]
  - HYPOXIC-ISCHAEMIC ENCEPHALOPATHY [None]
  - PNEUMONIA [None]
